FAERS Safety Report 12979721 (Version 1)
Quarter: 2016Q4

REPORT INFORMATION
  Report Type: Report from Study
  Country: GB (occurrence: GB)
  Receive Date: 20161128
  Receipt Date: 20161128
  Transmission Date: 20170207
  Serious: Yes (Hospitalization, Other)
  Sender: FDA-Public Use
  Company Number: GB-GLAXOSMITHKLINE-PHHO2013GB004532

PATIENT

DRUGS (4)
  1. EVEROLIMUS [Suspect]
     Active Substance: EVEROLIMUS
     Indication: BREAST CANCER
     Dosage: 10 MG, QD
     Route: 048
     Dates: start: 20130204, end: 20130306
  2. EVEROLIMUS [Suspect]
     Active Substance: EVEROLIMUS
     Dosage: 10 MG, QD
     Route: 048
  3. DENUSOMAB [Concomitant]
     Indication: METASTASES TO BONE
     Dosage: ONCE A MONTH
     Route: 058
     Dates: start: 20130204, end: 20130306
  4. DICLOFENAC [Suspect]
     Active Substance: DICLOFENAC
     Dosage: 50 MG, QID
     Route: 048
     Dates: end: 20130326

REACTIONS (1)
  - Duodenal ulcer perforation [Recovered/Resolved]

NARRATIVE: CASE EVENT DATE: 20130327
